FAERS Safety Report 6223176-2 (Version None)
Quarter: 2009Q2

REPORT INFORMATION
  Report Type: 
  Country: None (occurrence: None)
  Receive Date: 20090611
  Receipt Date: 20090605
  Transmission Date: 20091009
  Serious: Yes (Hospitalization)
  Sender: FDA-Public Use
  Company Number: BR-ASTRAZENECA-2009UW14701

PATIENT
  Age: 56 Year
  Sex: Female
  Weight: 57 kg

DRUGS (5)
  1. CRESTOR [Suspect]
     Route: 048
  2. ATACAND HCT [Suspect]
     Dosage: 8/12.5 MG
     Route: 048
     Dates: start: 20080601, end: 20090504
  3. GALVOS [Concomitant]
  4. LEVEMIR [Concomitant]
  5. GLIFAGE XR [Concomitant]

REACTIONS (2)
  - ACUTE MYOCARDIAL INFARCTION [None]
  - ANGINA PECTORIS [None]
